FAERS Safety Report 23534447 (Version 1)
Quarter: 2024Q1

REPORT INFORMATION
  Report Type: Spontaneous
  Country: PR (occurrence: PR)
  Receive Date: 20240217
  Receipt Date: 20240217
  Transmission Date: 20240410
  Serious: No
  Sender: FDA-Public Use
  Company Number: PR-JNJFOC-20240221561

PATIENT
  Age: 28 Year
  Sex: Female
  Weight: 52.21 kg

DRUGS (2)
  1. STELARA [Suspect]
     Active Substance: USTEKINUMAB
     Indication: Product used for unknown indication
     Route: 058
  2. STELARA [Suspect]
     Active Substance: USTEKINUMAB

REACTIONS (1)
  - Product storage error [Unknown]

NARRATIVE: CASE EVENT DATE: 20240203
